FAERS Safety Report 22338433 (Version 1)
Quarter: 2023Q2

REPORT INFORMATION
  Report Type: Spontaneous
  Country: US (occurrence: None)
  Receive Date: 20230518
  Receipt Date: 20230518
  Transmission Date: 20230722
  Serious: No
  Sender: FDA-Public Use
  Company Number: US-ROCHE-3251543

PATIENT
  Age: 61 Year
  Sex: Male
  Weight: 83.536 kg

DRUGS (5)
  1. ACTEMRA [Suspect]
     Active Substance: TOCILIZUMAB
     Indication: Myalgia
     Dosage: STRENGTH:162MG/0.9ML
     Route: 058
  2. ACTEMRA [Suspect]
     Active Substance: TOCILIZUMAB
  3. TESTOSTERONE [Concomitant]
     Active Substance: TESTOSTERONE
  4. PREDNISONE [Concomitant]
     Active Substance: PREDNISONE
     Dates: start: 2022
  5. PREDNISONE [Concomitant]
     Active Substance: PREDNISONE

REACTIONS (7)
  - Product dose omission issue [Unknown]
  - Rash erythematous [Recovered/Resolved]
  - Device malfunction [Unknown]
  - Off label use [Unknown]
  - Accidental exposure to product [Unknown]
  - Wrong technique in product usage process [Unknown]
  - Underdose [Unknown]

NARRATIVE: CASE EVENT DATE: 20220101
